FAERS Safety Report 11285666 (Version 4)
Quarter: 2016Q2

REPORT INFORMATION
  Report Type: Report from Study
  Country: DE (occurrence: DE)
  Receive Date: 20150721
  Receipt Date: 20160531
  Transmission Date: 20160815
  Serious: Yes (Hospitalization, Other)
  Sender: FDA-Public Use
  Company Number: DE-ABBVIE-15K-062-1425099-00

PATIENT
  Age: 58 Year
  Sex: Female

DRUGS (1)
  1. HUMIRA [Suspect]
     Active Substance: ADALIMUMAB
     Indication: CROHN^S DISEASE
     Route: 058
     Dates: start: 2010, end: 20160502

REACTIONS (3)
  - Functional gastrointestinal disorder [Recovering/Resolving]
  - Cystitis interstitial [Recovering/Resolving]
  - Urethral stenosis [Not Recovered/Not Resolved]

NARRATIVE: CASE EVENT DATE: 20150707
